FAERS Safety Report 5020750-6 (Version None)
Quarter: 2006Q2

REPORT INFORMATION
  Report Type: 
  Country: None (occurrence: None)
  Receive Date: 20060606
  Receipt Date: 20060523
  Transmission Date: 20061013
  Serious: Yes (Hospitalization)
  Sender: FDA-Public Use
  Company Number: 2006BI002663

PATIENT
  Age: 62 Year
  Sex: Female
  Weight: 108.4097 kg

DRUGS (6)
  1. AVONEX [Suspect]
     Indication: MULTIPLE SCLEROSIS
     Dosage: 30 UG; QW; IM
     Route: 030
     Dates: start: 20030101
  2. NEURONTIN [Concomitant]
  3. PROZAC [Concomitant]
  4. PREMARIN [Concomitant]
  5. SANCTURA [Concomitant]
  6. TOPROL-XL [Concomitant]

REACTIONS (3)
  - CELLULITIS [None]
  - DYSPEPSIA [None]
  - PYREXIA [None]
